FAERS Safety Report 19086601 (Version 2)
Quarter: 2021Q2

REPORT INFORMATION
  Report Type: Spontaneous
  Country: DE (occurrence: DE)
  Receive Date: 20210402
  Receipt Date: 20210503
  Transmission Date: 20210717
  Serious: Yes (Other)
  Sender: FDA-Public Use
  Company Number: DE-ORGANON-O2103DEU003129

PATIENT
  Sex: Female

DRUGS (1)
  1. MIRTAZAPINE. [Suspect]
     Active Substance: MIRTAZAPINE
     Dosage: UNK; TAKEN UNDER SUPERVISION IN THE CLINIC
     Dates: start: 201903

REACTIONS (4)
  - Drug abuse [Unknown]
  - Feeling abnormal [Unknown]
  - Derealisation [Unknown]
  - Altered state of consciousness [Unknown]
